FAERS Safety Report 9732513 (Version 2)
Quarter: 2013Q4

REPORT INFORMATION
  Report Type: Spontaneous
  Country: US (occurrence: US)
  Receive Date: 20131205
  Receipt Date: 20131231
  Transmission Date: 20140711
  Serious: No
  Sender: FDA-Public Use
  Company Number: US-PFIZER INC-2013346857

PATIENT
  Age: 28 Year
  Sex: Male

DRUGS (1)
  1. SKELAXIN [Suspect]
     Dosage: UNK

REACTIONS (1)
  - Pain [Unknown]
